FAERS Safety Report 18705441 (Version 1)
Quarter: 2021Q1

REPORT INFORMATION
  Report Type: Report from Study
  Country: NL (occurrence: NL)
  Receive Date: 20210106
  Receipt Date: 20210106
  Transmission Date: 20210419
  Serious: Yes (Disabling, Other)
  Sender: FDA-Public Use
  Company Number: NL-AUROBINDO-AUR-APL-2021-000154

PATIENT
  Age: 64 Year
  Sex: Male

DRUGS (3)
  1. OXALIPLATIN CONCENTRATE FOR SOLUTION FOR INFUSION [Suspect]
     Active Substance: OXALIPLATIN
     Indication: RECTAL CANCER
     Dosage: 780 MILLIGRAM/SQ. METER, 6 CYCLICAL
     Route: 041
  2. BEVACIZUMAB. [Suspect]
     Active Substance: BEVACIZUMAB
     Indication: RECTAL CANCER
     Dosage: UNK UNK,6CYCLICAL
     Route: 041
  3. CAPECITABINE. [Suspect]
     Active Substance: CAPECITABINE
     Indication: RECTAL CANCER
     Dosage: UNK UNK,6CYCLICAL
     Route: 041

REACTIONS (8)
  - Impaired quality of life [Unknown]
  - Infusion site hypoaesthesia [Recovered/Resolved]
  - Loss of personal independence in daily activities [Unknown]
  - Neuropathy peripheral [Not Recovered/Not Resolved]
  - Neurotoxicity [Not Recovered/Not Resolved]
  - Malaise [Unknown]
  - Infusion site pain [Recovered/Resolved]
  - Fatigue [Not Recovered/Not Resolved]
